FAERS Safety Report 13354532 (Version 1)
Quarter: 2017Q1

REPORT INFORMATION
  Report Type: Spontaneous
  Country: US (occurrence: US)
  Receive Date: 20170321
  Receipt Date: 20170321
  Transmission Date: 20170429
  Serious: No
  Sender: FDA-Public Use
  Company Number: US-BAYER-2017-046719

PATIENT
  Age: 57 Year
  Sex: Female

DRUGS (5)
  1. CLARITHROMYCIN. [Concomitant]
     Active Substance: CLARITHROMYCIN
     Dosage: 500 MG, BID
  2. TACROLIMUS. [Concomitant]
     Active Substance: TACROLIMUS
     Dosage: 5 MG, UNK
  3. TACROLIMUS. [Concomitant]
     Active Substance: TACROLIMUS
     Dosage: TOTAL DAILY DOSES RANGING FROM 1 TO 2.5 MG
  4. RIFABUTIN. [Concomitant]
     Active Substance: RIFABUTIN
     Dosage: 300 MG, QD
  5. CIPROFLOXACIN. [Suspect]
     Active Substance: CIPROFLOXACIN
     Dosage: 500 MG, BID

REACTIONS (2)
  - Off label use [None]
  - Nausea [None]
